FAERS Safety Report 4855298-2 (Version None)
Quarter: 2005Q4

REPORT INFORMATION
  Report Type: 
  Country: None (occurrence: None)
  Receive Date: 20051215
  Receipt Date: 20051005
  Transmission Date: 20060501
  Serious: Yes (Hospitalization, Disabling)
  Sender: FDA-Public Use
  Company Number: CA-MERCK-0510CAN00094

PATIENT
  Age: 44 Year
  Sex: Female
  Weight: 100 kg

DRUGS (10)
  1. VIOXX [Suspect]
     Indication: PAIN
     Route: 048
     Dates: start: 20001201, end: 20040401
  2. VIOXX [Suspect]
     Route: 048
     Dates: start: 20001201, end: 20040401
  3. VIOXX [Suspect]
     Indication: FIBROMYALGIA
     Route: 048
     Dates: start: 20001201, end: 20040401
  4. VIOXX [Suspect]
     Route: 048
     Dates: start: 20001201, end: 20040401
  5. METFORMIN [Concomitant]
     Route: 065
  6. GLYBURIDE [Concomitant]
     Route: 065
  7. PIOGLITAZONE HYDROCHLORIDE [Concomitant]
     Route: 065
  8. LANSOPRAZOLE [Concomitant]
     Route: 065
  9. CITALOPRAM HYDROBROMIDE [Concomitant]
     Route: 065
  10. ZOPICLONE [Concomitant]
     Route: 065

REACTIONS (2)
  - MYOCARDIAL INFARCTION [None]
  - NECK INJURY [None]
